FAERS Safety Report 5428786-8 (Version None)
Quarter: 2007Q3

REPORT INFORMATION
  Report Type: 
  Country: None (occurrence: None)
  Receive Date: 20070829
  Receipt Date: 20070827
  Transmission Date: 20080115
  Serious: Yes (Death, Other)
  Sender: FDA-Public Use
  Company Number: PHEH2007US09774

PATIENT
  Age: 57 Year
  Sex: Male

DRUGS (1)
  1. CLOZARIL [Suspect]
     Indication: SCHIZOPHRENIA
     Dosage: 350 MG, BID
     Dates: start: 19970807, end: 20070504

REACTIONS (6)
  - ENTERITIS [None]
  - INSOMNIA [None]
  - INTESTINAL OBSTRUCTION [None]
  - MALAISE [None]
  - OESOPHAGITIS [None]
  - PHOBIA [None]
